FAERS Safety Report 26110740 (Version 1)
Quarter: 2025Q4

REPORT INFORMATION
  Report Type: Spontaneous
  Country: JP (occurrence: JP)
  Receive Date: 20251202
  Receipt Date: 20251202
  Transmission Date: 20260118
  Serious: Yes (Other)
  Sender: MERCK SHARP & DOHME LLC
  Company Number: JP-009507513-2355989

PATIENT
  Age: 70 Year
  Sex: Male

DRUGS (1)
  1. KEYTRUDA [Suspect]
     Active Substance: PEMBROLIZUMAB
     Indication: Lung adenocarcinoma stage III
     Dosage: NUMBER OF COURSES ON REGIMEN 1

REACTIONS (6)
  - Renal impairment [Unknown]
  - Therapy partial responder [Unknown]
  - Bronchial fistula [Unknown]
  - Immune-mediated neuropathy [Unknown]
  - Immune-mediated adrenal insufficiency [Unknown]
  - Eosinophil count increased [Unknown]
